FAERS Safety Report 5166625-3 (Version None)
Quarter: 2006Q4

REPORT INFORMATION
  Report Type: 
  Country: None (occurrence: None)
  Receive Date: 20061207
  Receipt Date: 20061128
  Transmission Date: 20070319
  Serious: Yes (Other)
  Sender: FDA-Public Use
  Company Number: FR-JNJFOC-20061106389

PATIENT
  Age: 36 Year
  Sex: Female

DRUGS (3)
  1. ACETAMINOPHEN [Suspect]
  2. ACETAMINOPHEN [Suspect]
     Indication: HEADACHE
     Dosage: 5-6 G DAILY
  3. THEODRENALINE/CAFEDRINE [Concomitant]

REACTIONS (2)
  - CYTOLYTIC HEPATITIS [None]
  - OVERDOSE [None]
